FAERS Safety Report 12644666 (Version 7)
Quarter: 2018Q3

REPORT INFORMATION
  Report Type: Report from Study
  Country: ES (occurrence: ES)
  Receive Date: 20160811
  Receipt Date: 20180919
  Transmission Date: 20181010
  Serious: Yes (Hospitalization)
  Sender: FDA-Public Use
  Company Number: ES-SA-2016SA139264

PATIENT
  Age: 37 Year
  Sex: Female

DRUGS (6)
  1. ALEMTUZUMAB [Suspect]
     Active Substance: ALEMTUZUMAB
     Indication: MULTIPLE SCLEROSIS RELAPSE
     Dosage: 12 MG,QD
     Route: 041
     Dates: start: 20160711, end: 20160712
  2. SOLU MODERIN [Concomitant]
     Active Substance: METHYLPREDNISOLONE SODIUM SUCCINATE
     Indication: PROPHYLAXIS
     Dosage: 1 G,QD
     Route: 042
     Dates: start: 20160711, end: 20160713
  3. ACICLOVIR [Concomitant]
     Active Substance: ACYCLOVIR
     Indication: PROPHYLAXIS
     Dosage: 200 MG,QD
     Route: 048
     Dates: start: 20160711
  4. PARACETAMOL [Concomitant]
     Active Substance: ACETAMINOPHEN
     Indication: PROPHYLAXIS
     Dosage: 1 G,QD
     Route: 042
     Dates: start: 20160611, end: 20160713
  5. OMEPRAZOLE. [Concomitant]
     Active Substance: OMEPRAZOLE
     Indication: PROPHYLAXIS
     Dosage: 40 MG,QD
     Route: 048
     Dates: start: 20160711
  6. DEXCHLORPHENIRAMINE [Concomitant]
     Active Substance: DEXCHLORPHENIRAMINE
     Indication: PROPHYLAXIS
     Dosage: 5 MG,QD
     Route: 042
     Dates: start: 20160711, end: 20160713

REACTIONS (7)
  - Pneumonitis [Recovered/Resolved]
  - Hypertransaminasaemia [Recovered/Resolved]
  - Pain in extremity [Recovering/Resolving]
  - Lymphopenia [Recovering/Resolving]
  - Cytokine release syndrome [Recovered/Resolved]
  - Fatigue [Recovering/Resolving]
  - Pericarditis [Recovered/Resolved]

NARRATIVE: CASE EVENT DATE: 20160713
